FAERS Safety Report 9380079 (Version 1)
Quarter: 2013Q3

REPORT INFORMATION
  Report Type: Spontaneous
  Country: FR (occurrence: FR)
  Receive Date: 20130702
  Receipt Date: 20130702
  Transmission Date: 20140515
  Serious: Yes (Other)
  Sender: FDA-Public Use
  Company Number: FR-ROXANE LABORATORIES, INC.-2013-RO-01078RO

PATIENT
  Age: 40 Year
  Sex: Male

DRUGS (1)
  1. CYCLOPHOSPHAMIDE TABLETS USP [Suspect]
     Indication: ANGIOSARCOMA
     Dosage: 50 MG
     Dates: start: 200807, end: 201005

REACTIONS (2)
  - Haematotoxicity [Recovered/Resolved]
  - Pancytopenia [Unknown]
